FAERS Safety Report 13062128 (Version 1)
Quarter: 2016Q4

REPORT INFORMATION
  Report Type: Spontaneous
  Country: FR (occurrence: FR)
  Receive Date: 20161226
  Receipt Date: 20161226
  Transmission Date: 20170207
  Serious: Yes (Hospitalization, Other)
  Sender: FDA-Public Use
  Company Number: FR-SCIEGEN PHARMACEUTICALS INC-2016SCILIT00625

PATIENT
  Age: 45 Year
  Sex: Male

DRUGS (4)
  1. CLOPIDOGREL [Suspect]
     Active Substance: CLOPIDOGREL BISULFATE
     Indication: STENT PLACEMENT
     Dosage: UNK
     Route: 065
  2. CLOPIDOGREL [Suspect]
     Active Substance: CLOPIDOGREL BISULFATE
     Dosage: DOUBLE DOSE
     Route: 065
  3. HEPARIN [Concomitant]
     Active Substance: HEPARIN SODIUM
     Indication: STENT PLACEMENT
     Dosage: UNK
     Route: 065
  4. ASPIRIN. [Suspect]
     Active Substance: ASPIRIN
     Indication: STENT PLACEMENT
     Dosage: UNK
     Route: 065

REACTIONS (12)
  - Hypertension [Unknown]
  - Leukoencephalopathy [Unknown]
  - Haematoma [Recovering/Resolving]
  - Thrombosis [Recovering/Resolving]
  - Haemorrhage [Unknown]
  - Aphasia [Unknown]
  - Dysarthria [Recovering/Resolving]
  - Cognitive disorder [Recovering/Resolving]
  - Cerebellar ataxia [Unknown]
  - Seizure [Recovering/Resolving]
  - Diplopia [Unknown]
  - Cerebrovascular accident [Unknown]
